FAERS Safety Report 6182813-1 (Version None)
Quarter: 2009Q2

REPORT INFORMATION
  Report Type: 
  Country: None (occurrence: None)
  Receive Date: 20090507
  Receipt Date: 20090501
  Transmission Date: 20091009
  Serious: Yes (Death, Life-Threatening, Hospitalization, Other)
  Sender: FDA-Public Use
  Company Number: CA-AVENTIS-200914445GDDC

PATIENT
  Age: 61 Year
  Sex: Female

DRUGS (5)
  1. INSULIN GLARGINE [Suspect]
     Indication: DIABETES MELLITUS
     Route: 058
     Dates: start: 20040817, end: 20080415
  2. OPTIPEN (INSULIN PUMP) [Suspect]
     Indication: DIABETES MELLITUS
  3. METFORMINA [Suspect]
     Dates: start: 20021101, end: 20080401
  4. PLACEBO [Suspect]
     Dosage: DOSE: UNK
     Route: 048
     Dates: start: 20040817, end: 20080415
  5. AMLODIPINA [Concomitant]
     Indication: HYPERTENSION
     Dates: start: 20060801, end: 20080401

REACTIONS (1)
  - HEPATIC CIRRHOSIS [None]
